FAERS Safety Report 7401714-1 (Version None)
Quarter: 2011Q1

REPORT INFORMATION
  Report Type: 
  Country: None (occurrence: None)
  Receive Date: 20110301
  Receipt Date: 20100804
  Transmission Date: 20110831
  Serious: Yes (Other)
  Sender: FDA-Public Use
  Company Number: US-JNJFOC-20100510983

PATIENT
  Age: 36 Month
  Sex: Male
  Weight: 14.0615 kg

DRUGS (1)
  1. CHILDREN'S MOTRIN [Suspect]
     Indication: PYREXIA
     Dosage: 100 MG, 1 IN 1 TOTAL, ORAL
     Route: 048
     Dates: start: 20100507, end: 20100507

REACTIONS (5)
  - RASH [None]
  - PRURITUS [None]
  - EYE SWELLING [None]
  - PRODUCT QUALITY ISSUE [None]
  - LIP SWELLING [None]
